FAERS Safety Report 23995905 (Version 1)
Quarter: 2024Q2

REPORT INFORMATION
  Report Type: Spontaneous
  Country: GB (occurrence: None)
  Receive Date: 20240620
  Receipt Date: 20240620
  Transmission Date: 20240716
  Serious: Yes (Other)
  Sender: FDA-Public Use
  Company Number: 2024A136754

PATIENT
  Age: 73 Year
  Sex: Male
  Weight: 106 kg

DRUGS (21)
  1. DAPAGLIFLOZIN [Suspect]
     Active Substance: DAPAGLIFLOZIN
     Indication: Diabetes mellitus
     Route: 048
     Dates: start: 20240227
  2. LANTUS [Concomitant]
     Active Substance: INSULIN GLARGINE
     Dates: start: 20240320
  3. FUROSEMIDE [Concomitant]
     Active Substance: FUROSEMIDE
     Dosage: IN THE MORNING
     Dates: start: 20230606, end: 20240506
  4. CLINDAMYCIN [Concomitant]
     Active Substance: CLINDAMYCIN
     Dates: start: 20240414, end: 20240421
  5. BUMETANIDE [Concomitant]
     Active Substance: BUMETANIDE
     Dates: start: 20240502
  6. CLOTRIMAZOLE [Concomitant]
     Active Substance: CLOTRIMAZOLE
     Indication: Fungal infection
     Dosage: APPLY TWO TO THREE TIMES A DAY, TO TREAT FUNGAL INFECTION
     Dates: start: 20240604, end: 20240611
  7. NYSTATIN [Concomitant]
     Active Substance: NYSTATIN
     Dosage: TO BE RINSED AROUND THE MOUTH AND THEN SWALLOWED
     Dates: start: 20240604
  8. ASPIRIN [Concomitant]
     Active Substance: ASPIRIN
     Dates: start: 20230606
  9. COSOPT [Concomitant]
     Active Substance: DORZOLAMIDE HYDROCHLORIDE\TIMOLOL MALEATE
     Dosage: DAILY BOTH EYES
     Dates: start: 20230606
  10. HYALURONATE SODIUM [Concomitant]
     Active Substance: HYALURONATE SODIUM
     Dosage: TO BOTH EYES
     Dates: start: 20230606
  11. LATANOPROST [Concomitant]
     Active Substance: LATANOPROST
     Dates: start: 20230606
  12. OMEPRAZOLE [Concomitant]
     Active Substance: DONEPEZIL HYDROCHLORIDE\OMEPRAZOLE\OMEPRAZOLE MAGNESIUM
     Indication: Gastrointestinal disorder
     Dates: start: 20230606
  13. VITA-POS [Concomitant]
     Dosage: USE AS DIRECTED AT BEDTIME
     Dates: start: 20230606
  14. WARFARIN SODIUM [Concomitant]
     Active Substance: WARFARIN SODIUM
     Dosage: AS DIRECTED
     Dates: start: 20230606
  15. ZEROCREAM [Concomitant]
     Dosage: USE AS DIRECTED
     Dates: start: 20230606
  16. BECLOMETHASONE\FORMOTEROL [Concomitant]
     Active Substance: BECLOMETHASONE\FORMOTEROL
     Dates: start: 20231207
  17. ATORVASTATIN [Concomitant]
     Active Substance: ATORVASTATIN
     Indication: Hypertension
     Dates: start: 20240227
  18. GLICLAZIDE [Concomitant]
     Active Substance: GLICLAZIDE
     Dosage: WITH FOOD
     Dates: start: 20240227
  19. LISINOPRIL [Concomitant]
     Active Substance: LISINOPRIL
     Dates: start: 20240227
  20. METFORMIN [Concomitant]
     Active Substance: METFORMIN HYDROCHLORIDE
     Dates: start: 20240227
  21. FERROUS SULFATE [Concomitant]
     Active Substance: FERROUS SULFATE
     Dosage: TAKE ONE TWICE A DAY
     Dates: start: 20240301

REACTIONS (2)
  - Candida infection [Recovered/Resolved]
  - Penile oedema [Recovered/Resolved]

NARRATIVE: CASE EVENT DATE: 20240612
